FAERS Safety Report 6669291-0 (Version None)
Quarter: 2010Q2

REPORT INFORMATION
  Report Type: 
  Country: None (occurrence: None)
  Receive Date: 20100402
  Receipt Date: 20100322
  Transmission Date: 20101027
  Serious: Yes (Death, Other)
  Sender: FDA-Public Use
  Company Number: 009251

PATIENT
  Age: 52 Year
  Sex: Male

DRUGS (4)
  1. BUSULFEX [Suspect]
     Indication: STEM CELL TRANSPLANT
  2. ANTI-THYMOCYTE GLOBULIN NOS [Concomitant]
  3. FLUDARABINE PHOSPHATE [Concomitant]
  4. TACROLIMUS [Concomitant]

REACTIONS (9)
  - CYSTITIS HAEMORRHAGIC [None]
  - HYPERTENSION [None]
  - MYELOMA RECURRENCE [None]
  - NO THERAPEUTIC RESPONSE [None]
  - OEDEMA PERIPHERAL [None]
  - RASH ERYTHEMATOUS [None]
  - RASH PAPULAR [None]
  - RENAL FAILURE ACUTE [None]
  - TUMOUR LYSIS SYNDROME [None]
